FAERS Safety Report 8085023-6 (Version None)
Quarter: 2012Q1

REPORT INFORMATION
  Report Type: 
  Country: None (occurrence: None)
  Receive Date: 20120128
  Receipt Date: 20110318
  Transmission Date: 20120608
  Serious: Yes (Hospitalization)
  Sender: FDA-Public Use
  Company Number: US-ABBOTT-11P-163-0713150-00

PATIENT
  Sex: Female
  Weight: 65.83 kg

DRUGS (3)
  1. LYRICA [Concomitant]
     Indication: PAIN
  2. HUMIRA [Suspect]
     Indication: PSORIATIC ARTHROPATHY
  3. HUMIRA [Suspect]
     Indication: ANKYLOSING SPONDYLITIS
     Dates: start: 20101001, end: 20110101

REACTIONS (4)
  - DIVERTICULITIS [None]
  - STAPHYLOCOCCAL INFECTION [None]
  - PSORIATIC ARTHROPATHY [None]
  - INJECTION SITE PAIN [None]
